FAERS Safety Report 6073231-5 (Version None)
Quarter: 2009Q1

REPORT INFORMATION
  Report Type: 
  Country: None (occurrence: None)
  Receive Date: 20090211
  Receipt Date: 20081117
  Transmission Date: 20090719
  Serious: No
  Sender: FDA-Public Use
  Company Number: A0756807A

PATIENT
  Age: 49 Year
  Sex: Female

DRUGS (2)
  1. ALTABAX [Suspect]
     Indication: RASH
     Route: 061
     Dates: start: 20081106, end: 20081113
  2. CHOLESTEROL REDUCING AGENT [Concomitant]

REACTIONS (1)
  - DRUG INEFFECTIVE [None]
